FAERS Safety Report 12409074 (Version 1)
Quarter: 2016Q2

REPORT INFORMATION
  Report Type: Spontaneous
  Country: US (occurrence: US)
  Receive Date: 20160526
  Receipt Date: 20160526
  Transmission Date: 20160815
  Serious: Yes (Death)
  Sender: FDA-Public Use
  Company Number: US-CELGENEUS-USA-2016022349

PATIENT
  Age: 61 Year
  Sex: Female

DRUGS (2)
  1. ABRAXANE [Suspect]
     Active Substance: PACLITAXEL
     Indication: LUNG NEOPLASM MALIGNANT
     Dosage: 124 MILLIGRAM
     Route: 041
     Dates: start: 20151216, end: 20160120
  2. CARBOPLATIN. [Concomitant]
     Active Substance: CARBOPLATIN
     Indication: PRODUCT USED FOR UNKNOWN INDICATION
     Route: 041
     Dates: start: 20151216, end: 20160113

REACTIONS (2)
  - Lung neoplasm malignant [Fatal]
  - Colon cancer [Fatal]

NARRATIVE: CASE EVENT DATE: 20160208
